FAERS Safety Report 14631873 (Version 1)
Quarter: 2018Q1

REPORT INFORMATION
  Report Type: Spontaneous
  Country: BR (occurrence: BR)
  Receive Date: 20180313
  Receipt Date: 20180313
  Transmission Date: 20180509
  Serious: Yes (Hospitalization)
  Sender: FDA-Public Use
  Company Number: BR-ROCHE-2087499

PATIENT
  Age: 64 Year
  Sex: Female

DRUGS (1)
  1. METALYSE [Suspect]
     Active Substance: TENECTEPLASE
     Indication: MYOCARDIAL INFARCTION
     Route: 065

REACTIONS (3)
  - Epistaxis [Recovered/Resolved]
  - Aspiration bronchial [Recovered/Resolved]
  - Vomiting [Recovered/Resolved]
